FAERS Safety Report 25479830 (Version 1)
Quarter: 2025Q2

REPORT INFORMATION
  Report Type: Spontaneous
  Country: US (occurrence: US)
  Receive Date: 20250625
  Receipt Date: 20250625
  Transmission Date: 20250716
  Serious: Yes (Other)
  Sender: AMGEN
  Company Number: US-AMGEN-USASP2025121950

PATIENT

DRUGS (6)
  1. PREDNISONE [Suspect]
     Active Substance: PREDNISONE
     Indication: Conjunctivitis
     Route: 065
  2. PREDNISONE [Suspect]
     Active Substance: PREDNISONE
     Indication: Ocular pemphigoid
  3. PREDNISONE [Suspect]
     Active Substance: PREDNISONE
     Indication: Mucous membrane pemphigoid
  4. RITUXIMAB [Suspect]
     Active Substance: RITUXIMAB
     Indication: Conjunctivitis
     Route: 065
  5. RITUXIMAB [Suspect]
     Active Substance: RITUXIMAB
     Indication: Ocular pemphigoid
  6. RITUXIMAB [Suspect]
     Active Substance: RITUXIMAB
     Indication: Mucous membrane pemphigoid

REACTIONS (16)
  - Ocular pemphigoid [Unknown]
  - Cholecystitis [Unknown]
  - Pyelonephritis [Unknown]
  - Transient ischaemic attack [Unknown]
  - Pulmonary embolism [Unknown]
  - Mucous membrane pemphigoid [Unknown]
  - Sepsis [Unknown]
  - Gastrointestinal disorder [Unknown]
  - Blood creatinine increased [Recovered/Resolved]
  - Therapy partial responder [Unknown]
  - Dermatitis acneiform [Recovered/Resolved]
  - Treatment failure [Unknown]
  - Arthralgia [Unknown]
  - Abdominal pain [Unknown]
  - Weight increased [Unknown]
  - Off label use [Unknown]
